FAERS Safety Report 10012871 (Version 1)
Quarter: 2014Q1

REPORT INFORMATION
  Report Type: Spontaneous
  Country: JP (occurrence: JP)
  Receive Date: 20140314
  Receipt Date: 20140314
  Transmission Date: 20141002
  Serious: Yes (Death, Other)
  Sender: FDA-Public Use
  Company Number: JP-WATSON-2014-04317

PATIENT
  Age: 73 Year
  Sex: Female

DRUGS (4)
  1. METHOTREXATE (UNKNOWN) [Suspect]
     Indication: RHEUMATOID ARTHRITIS
     Dosage: 5 MG, 1/WEEK
     Route: 065
  2. METHOTREXATE (UNKNOWN) [Suspect]
     Dosage: 8 MG, 1/WEEK
     Route: 065
  3. PREDNISONE (UNKNOWN) [Suspect]
     Indication: RHEUMATOID ARTHRITIS
     Dosage: 5 MG, DAILY
     Route: 065
     Dates: start: 1995, end: 200504
  4. INFLIXIMAB [Suspect]
     Indication: RHEUMATOID ARTHRITIS
     Dosage: 150 MG, EVERY 8 WEEKS
     Route: 042
     Dates: start: 200406, end: 200505

REACTIONS (4)
  - Hepatitis B [Fatal]
  - Acute hepatitis B [Fatal]
  - Hepatic failure [Fatal]
  - Drug withdrawal syndrome [Unknown]
